FAERS Safety Report 8235207-9 (Version None)
Quarter: 2012Q1

REPORT INFORMATION
  Report Type: 
  Country: None (occurrence: None)
  Receive Date: 20120326
  Receipt Date: 20120321
  Transmission Date: 20120608
  Serious: No
  Sender: FDA-Public Use
  Company Number: US-TEVA-327635USA

PATIENT
  Sex: Female
  Weight: 88.53 kg

DRUGS (1)
  1. PLAN B ONE-STEP [Suspect]
     Indication: POST COITAL CONTRACEPTION
     Dosage: 1.5 MILLIGRAM;
     Route: 048
     Dates: start: 20120308, end: 20120308

REACTIONS (4)
  - FLANK PAIN [None]
  - CHEST PAIN [None]
  - OFF LABEL USE [None]
  - MENSTRUATION IRREGULAR [None]
